FAERS Safety Report 12991710 (Version 1)
Quarter: 2016Q4

REPORT INFORMATION
  Report Type: Spontaneous
  Country: US (occurrence: US)
  Receive Date: 20161201
  Receipt Date: 20161201
  Transmission Date: 20170207
  Serious: Yes (Hospitalization, Other)
  Sender: FDA-Public Use
  Company Number: US-SHIRE-US201617723

PATIENT
  Age: 16 Year
  Sex: Female

DRUGS (1)
  1. 433 (CARBAMAZEPINE) [Suspect]
     Active Substance: CARBAMAZEPINE
     Indication: PRODUCT USED FOR UNKNOWN INDICATION
     Dosage: 4 DF, ONE DOSE
     Route: 048

REACTIONS (2)
  - Drug diversion [Recovered/Resolved]
  - Toxicity to various agents [Recovered/Resolved]
